FAERS Safety Report 5569789-2 (Version None)
Quarter: 2007Q4

REPORT INFORMATION
  Report Type: 
  Country: None (occurrence: None)
  Receive Date: 20071218
  Receipt Date: 20071204
  Transmission Date: 20080405
  Serious: Yes (Hospitalization)
  Sender: FDA-Public Use
  Company Number: US-CVT-070140

PATIENT
  Age: 74 Year
  Sex: Female
  Weight: 113.3 kg

DRUGS (10)
  1. RANEXA [Suspect]
     Indication: ANGINA PECTORIS
     Dosage: 500 MG, BID, ORAL
     Route: 048
     Dates: start: 20070718, end: 20070720
  2. DILTIAZEM [Suspect]
     Indication: HYPERTENSION
     Dosage: 240 MG, QD, ORAL
     Route: 048
     Dates: end: 20070720
  3. HYDRALAZINE HCL [Concomitant]
  4. FUROSEMIDE /00032601/ (FUROSEMIDE) [Concomitant]
  5. PROZAC [Concomitant]
  6. ASPIRIN [Concomitant]
  7. ACTOS/01460201/(PIOGLITAZONE) [Concomitant]
  8. PRAVASTATIN [Concomitant]
  9. CARVEDILOL [Concomitant]
  10. ATENOLOL [Concomitant]

REACTIONS (8)
  - CARDIAC ARREST [None]
  - CAROTID ARTERY STENOSIS [None]
  - CEREBROVASCULAR ACCIDENT [None]
  - CORONARY ARTERY DISEASE [None]
  - DRUG INTERACTION [None]
  - PULMONARY HYPERTENSION [None]
  - TORSADE DE POINTES [None]
  - VENTRICULAR TACHYCARDIA [None]
